FAERS Safety Report 8980657 (Version 3)
Quarter: 2013Q4

REPORT INFORMATION
  Report Type: Report from Study
  Country: JP (occurrence: JP)
  Receive Date: 20121221
  Receipt Date: 20131014
  Transmission Date: 20140711
  Serious: Yes (Hospitalization, Other)
  Sender: FDA-Public Use
  Company Number: JP-VERTEX PHARMACEUTICAL INC.-2012-022095

PATIENT
  Age: 61 Year
  Sex: Female

DRUGS (14)
  1. VX-950 (TELAPREVIR) [Suspect]
     Indication: CHRONIC HEPATITIS C
     Dosage: 2250 MG, QD
     Route: 048
     Dates: start: 20120613, end: 20120710
  2. VX-950 (TELAPREVIR) [Suspect]
     Dosage: 1500 MG, QD
     Route: 048
     Dates: start: 20120711, end: 20120807
  3. REBETOL [Suspect]
     Indication: CHRONIC HEPATITIS C
     Dosage: 600 MG, QD
     Route: 048
     Dates: start: 20120613, end: 20120703
  4. REBETOL [Suspect]
     Dosage: 400 MG, QD
     Route: 048
     Dates: start: 20120704, end: 20120724
  5. REBETOL [Suspect]
     Dosage: 200 MG, QD
     Route: 048
     Dates: start: 20120725, end: 20120731
  6. REBETOL [Suspect]
     Dosage: 200 MG, QD
     Route: 048
     Dates: start: 20121003, end: 20121030
  7. REBETOL [Suspect]
     Dosage: 400 MG, QD
     Route: 048
     Dates: start: 20121031, end: 20121106
  8. REBETOL [Suspect]
     Dosage: 400 MG, QD
     Route: 048
     Dates: start: 20121109, end: 20121204
  9. PEGINTRON [Suspect]
     Indication: CHRONIC HEPATITIS C
     Dosage: 1.5 MG/KG, QW
     Route: 058
     Dates: start: 20120613, end: 20120725
  10. PEGINTRON [Suspect]
     Dosage: 0.76 ?G/KG, QW
     Route: 058
     Dates: start: 20120801, end: 20121024
  11. PEGINTRON [Suspect]
     Dosage: 0.96 ?G/KG, QW
     Route: 058
     Dates: start: 20121031, end: 20121031
  12. PEGINTRON [Suspect]
     Dosage: 0.96 ?G/KG, QW
     Route: 058
     Dates: start: 20121114, end: 20121128
  13. LOXONIN [Concomitant]
     Dosage: UNK
     Route: 048
     Dates: start: 20120614, end: 20121204
  14. MUCOSTA [Concomitant]
     Dosage: UNK, PRN
     Route: 048
     Dates: start: 20121106, end: 20121204

REACTIONS (3)
  - Haemoglobin decreased [Recovered/Resolved]
  - Dizziness [Recovered/Resolved]
  - Malaise [Recovered/Resolved]
